FAERS Safety Report 4431696-6 (Version None)
Quarter: 2004Q3

REPORT INFORMATION
  Report Type: 
  Country: None (occurrence: None)
  Receive Date: 20040825
  Receipt Date: 20040813
  Transmission Date: 20050211
  Serious: Yes (Other)
  Sender: FDA-Public Use
  Company Number: US-JNJFOC-20040306354

PATIENT
  Sex: Female
  Weight: 84.82 kg

DRUGS (14)
  1. REMICADE [Suspect]
     Dosage: 5 VIALS
     Route: 042
  2. REMICADE [Suspect]
     Route: 042
  3. REMICADE [Suspect]
     Indication: CROHN'S DISEASE
     Route: 042
  4. CREON 20 [Concomitant]
     Indication: PANCREATITIS
  5. ASACOL [Concomitant]
     Route: 049
  6. FLAGYL [Concomitant]
     Route: 049
  7. ESTRATEST [Concomitant]
  8. ESTRATEST [Concomitant]
  9. ULTRAM [Concomitant]
  10. XANAX [Concomitant]
     Route: 049
  11. LEXAPRO [Concomitant]
  12. LEVOXYL [Concomitant]
  13. NEXIUM [Concomitant]
  14. TRAZODONE [Concomitant]

REACTIONS (2)
  - BONE LESION [None]
  - GROIN PAIN [None]
